FAERS Safety Report 23915657 (Version 2)
Quarter: 2024Q3

REPORT INFORMATION
  Report Type: Report from Study
  Country: US (occurrence: US)
  Receive Date: 20240529
  Receipt Date: 20240823
  Transmission Date: 20241017
  Serious: Yes (Other)
  Sender: MYLAN
  Company Number: US-MYLANLABS-2024M1048107

PATIENT
  Age: 38 Year
  Sex: Female
  Weight: 90.975 kg

DRUGS (13)
  1. CLOZAPINE [Suspect]
     Active Substance: CLOZAPINE
     Indication: Borderline personality disorder
     Dosage: 75 MILLIGRAM, QD (BY MOUTH AT NIGHT)
     Route: 048
     Dates: start: 20230815
  2. ATENOLOL [Concomitant]
     Active Substance: ATENOLOL
     Dosage: 100 MILLIGRAM, QD (DAILY)
     Route: 065
     Dates: start: 202405
  3. ATORVASTATIN [Concomitant]
     Active Substance: ATORVASTATIN
     Dosage: 10 MILLIGRAM, QD (AT BED TIME)
     Route: 065
     Dates: start: 202405
  4. DILTIAZEM [Concomitant]
     Active Substance: DILTIAZEM
     Dosage: 360 MILLIGRAM, QD (DAILY)
     Route: 065
     Dates: start: 202405
  5. DULOXETINE [Concomitant]
     Active Substance: DULOXETINE
     Dosage: 80 MILLIGRAM, QD (DAILY)
     Route: 065
     Dates: end: 20240524
  6. DULOXETINE [Concomitant]
     Active Substance: DULOXETINE
     Dosage: 40 MILLIGRAM, QD (DAILY)
     Route: 065
     Dates: start: 20240525
  7. HYDROXYZINE [Concomitant]
     Active Substance: HYDROXYZINE HYDROCHLORIDE
     Dosage: 25 MILLIGRAM, QD (AT BEDTIME)
     Route: 065
     Dates: start: 202405
  8. HYDROXYZINE [Concomitant]
     Active Substance: HYDROXYZINE HYDROCHLORIDE
     Dosage: 50 MILLIGRAM, QD (DAILY)
     Route: 065
     Dates: start: 202405
  9. LAMOTRIGINE [Concomitant]
     Active Substance: LAMOTRIGINE
     Dosage: 150 MILLIGRAM, QD (AT BED TIME)
     Route: 065
     Dates: start: 202405
  10. METFORMIN [Concomitant]
     Active Substance: METFORMIN HYDROCHLORIDE
     Dosage: 500 MILLIGRAM, BID (TWICE DAILY)
     Route: 065
     Dates: start: 202405
  11. ACETAMINOPHEN [Concomitant]
     Active Substance: ACETAMINOPHEN
     Dosage: 650 MILLIGRAM, TID (THREE TIMES DAILY AS NEEDED)
     Route: 065
  12. IBUPROFEN [Concomitant]
     Active Substance: IBUPROFEN
     Dosage: 800 MILLIGRAM, TID (THREE TIMES DAILY AS NEEDED)
     Route: 065
  13. MELATONIN [Concomitant]
     Active Substance: MELATONIN
     Dosage: 3 MILLIGRAM, PRN (AT BEDTIME AS NEEDED)
     Route: 065

REACTIONS (2)
  - Neutropenia [Recovering/Resolving]
  - Off label use [Unknown]

NARRATIVE: CASE EVENT DATE: 20230815
